FAERS Safety Report 7734716-6 (Version None)
Quarter: 2011Q3

REPORT INFORMATION
  Report Type: 
  Country: None (occurrence: None)
  Receive Date: 20110901
  Receipt Date: 20110822
  Transmission Date: 20111222
  Serious: Yes (Other)
  Sender: FDA-Public Use
  Company Number: 2011AP001847

PATIENT
  Age: 16 Year
  Sex: Male

DRUGS (3)
  1. RISPERIDONE [Suspect]
     Indication: PRODUCT USED FOR UNKNOWN INDICATION
     Dosage: PO
     Route: 048
  2. METHYLPHENIDATE HCL [Suspect]
     Indication: ATTENTION DEFICIT/HYPERACTIVITY DISORDER
     Dosage: 18,27 MG, PO
     Route: 048
  3. SODIUM VALPROATE (VALPROATE SODIUIM) [Concomitant]

REACTIONS (4)
  - INSOMNIA [None]
  - TACHYCARDIA [None]
  - ATTENTION DEFICIT/HYPERACTIVITY DISORDER [None]
  - WEIGHT DECREASED [None]
